FAERS Safety Report 20989057 (Version 1)
Quarter: 2022Q2

REPORT INFORMATION
  Report Type: Spontaneous
  Country: US (occurrence: US)
  Receive Date: 20220621
  Receipt Date: 20220621
  Transmission Date: 20220720
  Serious: No
  Sender: FDA-Public Use
  Company Number: US-BEH-2022146598

PATIENT
  Age: 58 Year
  Sex: Female

DRUGS (1)
  1. HIZENTRA [Suspect]
     Active Substance: HUMAN IMMUNOGLOBULIN G
     Indication: Immunodeficiency common variable
     Dosage: 18 GRAM, QOW
     Route: 058
     Dates: start: 20220613

REACTIONS (3)
  - Infusion site urticaria [Recovering/Resolving]
  - Infusion site erythema [Recovering/Resolving]
  - Infusion site pruritus [Recovering/Resolving]

NARRATIVE: CASE EVENT DATE: 20220613
